FAERS Safety Report 8269528-0 (Version None)
Quarter: 2012Q2

REPORT INFORMATION
  Report Type: 
  Country: None (occurrence: None)
  Receive Date: 20120409
  Receipt Date: 20120323
  Transmission Date: 20120825
  Serious: Yes (Hospitalization)
  Sender: FDA-Public Use
  Company Number: PT-BAXTER-2012BH007696

PATIENT
  Age: 71 Year
  Sex: Male

DRUGS (2)
  1. EXTRANEAL [Suspect]
     Route: 033
     Dates: start: 20120208
  2. PHYSIOSOL IN PLASTIC CONTAINER [Suspect]
     Route: 033
     Dates: start: 20120208

REACTIONS (1)
  - PERITONITIS BACTERIAL [None]
